FAERS Safety Report 14473427 (Version 1)
Quarter: 2018Q1

REPORT INFORMATION
  Report Type: Spontaneous
  Country: JP (occurrence: JP)
  Receive Date: 20180201
  Receipt Date: 20180201
  Transmission Date: 20180509
  Serious: Yes (Life-Threatening, Hospitalization, Other)
  Sender: FDA-Public Use
  Company Number: JP-ROCHE-2040325

PATIENT
  Age: 62 Year
  Sex: Male
  Weight: 43 kg

DRUGS (5)
  1. LEVOFOLINATE [Suspect]
     Active Substance: LEVOLEUCOVORIN CALCIUM
     Indication: RECTAL CANCER
     Route: 041
     Dates: start: 20170323, end: 20170323
  2. AVASTIN [Suspect]
     Active Substance: BEVACIZUMAB
     Indication: RECTAL CANCER
     Route: 041
     Dates: start: 20170323, end: 20170323
  3. ELPLAT [Suspect]
     Active Substance: OXALIPLATIN
     Indication: RECTAL CANCER
     Route: 041
     Dates: start: 20170323, end: 20170323
  4. 5-FU [Suspect]
     Active Substance: FLUOROURACIL
     Indication: RECTAL CANCER
     Route: 040
     Dates: start: 20170323, end: 20170323
  5. 5-FU [Suspect]
     Active Substance: FLUOROURACIL
     Dosage: DOSE INTERVAL UNCERTAINTY
     Route: 041
     Dates: start: 20170323, end: 20170325

REACTIONS (3)
  - Tumour necrosis [Unknown]
  - Rectal perforation [Recovered/Resolved]
  - Peritonitis [Recovered/Resolved]

NARRATIVE: CASE EVENT DATE: 20170405
